FAERS Safety Report 8067134-4 (Version None)
Quarter: 2012Q1

REPORT INFORMATION
  Report Type: 
  Country: None (occurrence: None)
  Receive Date: 20120124
  Receipt Date: 20120109
  Transmission Date: 20120608
  Serious: Yes (Other)
  Sender: FDA-Public Use
  Company Number: AU-WATSON-2012-00658

PATIENT
  Age: 52 Year
  Sex: Female

DRUGS (1)
  1. ENALAPRIL MALEATE [Suspect]
     Indication: HYPERTENSION
     Dosage: 10 MG, DAILY
     Route: 065

REACTIONS (7)
  - CHROMATURIA [None]
  - LIVER INJURY [None]
  - BILIRUBINURIA [None]
  - EXFOLIATIVE RASH [None]
  - DECREASED APPETITE [None]
  - NAUSEA [None]
  - PYREXIA [None]
